FAERS Safety Report 14355588 (Version 2)
Quarter: 2018Q1

REPORT INFORMATION
  Report Type: Spontaneous
  Country: US (occurrence: US)
  Receive Date: 20180105
  Receipt Date: 20180115
  Transmission Date: 20180509
  Serious: Yes (Death)
  Sender: FDA-Public Use
  Company Number: US-ASTELLAS-2018US000939

PATIENT
  Age: 62 Year
  Sex: Female

DRUGS (2)
  1. PROGRAF [Suspect]
     Active Substance: TACROLIMUS\TACROLIMUS ANHYDROUS
     Indication: RENAL TRANSPLANT
     Route: 048
     Dates: start: 20140804
  2. PROGRAF [Suspect]
     Active Substance: TACROLIMUS\TACROLIMUS ANHYDROUS
     Dosage: 5 MG, DAILY (3 MG IN THE MORNING AND 2 MG IN THE EVENING)
     Route: 048
     Dates: start: 20160818, end: 20171231

REACTIONS (1)
  - Death [Fatal]

NARRATIVE: CASE EVENT DATE: 20171231
